FAERS Safety Report 19817259 (Version 2)
Quarter: 2021Q3

REPORT INFORMATION
  Report Type: Report from Study
  Country: CN (occurrence: CN)
  Receive Date: 20210910
  Receipt Date: 20210929
  Transmission Date: 20211014
  Serious: Yes (Hospitalization, Other)
  Sender: FDA-Public Use
  Company Number: CN-BRISTOL-MYERS SQUIBB COMPANY-BMS-2021-081283

PATIENT
  Age: 71 Year
  Sex: Male
  Weight: 50 kg

DRUGS (20)
  1. CEFTEZOLE SODIUM [Concomitant]
     Active Substance: CEFTEZOLE SODIUM
     Indication: PRODUCT USED FOR UNKNOWN INDICATION
     Dosage: 0.5 GRAM, ONCE
     Route: 050
     Dates: start: 20210813, end: 20210813
  2. NIVOLUMAB [Suspect]
     Active Substance: NIVOLUMAB
     Indication: NON-SMALL CELL LUNG CANCER
     Dosage: 360 MILLIGRAM
     Route: 065
     Dates: start: 20210721, end: 20210810
  3. IRON SUCROSE [Concomitant]
     Active Substance: IRON SUCROSE
     Indication: ADVERSE EVENT
     Dosage: 10?UNITS NOT SPECIFIED, THRICE A WEEK
     Route: 042
     Dates: start: 20210812, end: 20210901
  4. CALCIUM GLUCONATE. [Concomitant]
     Active Substance: CALCIUM GLUCONATE
     Indication: PRODUCT USED FOR UNKNOWN INDICATION
     Dosage: 10?UNITS NOT SPECIFIED, EPR DAY
     Route: 042
     Dates: start: 20210816, end: 20210817
  5. PANTOPRAZOLE SODIUM. [Concomitant]
     Active Substance: PANTOPRAZOLE SODIUM
     Indication: PRODUCT USED FOR UNKNOWN INDICATION
     Dosage: 40 MILLIGRAM
     Route: 042
     Dates: start: 20210810, end: 20210811
  6. PACLITAXEL. [Suspect]
     Active Substance: PACLITAXEL
     Indication: NON-SMALL CELL LUNG CANCER
     Dosage: 67 MILLIGRAM
     Route: 065
     Dates: start: 20210810, end: 20210810
  7. CARBOHYDRATE AND ELECTROLYTE [Concomitant]
     Active Substance: CARBOHYDRATES\ELECTROLYTES NOS
     Dosage: 500?UNITS NOT SPECIFIED, PER DAY
     Route: 042
     Dates: start: 20210816, end: 20210817
  8. CARBOPLATIN. [Suspect]
     Active Substance: CARBOPLATIN
     Indication: NON-SMALL CELL LUNG CANCER
     Dosage: 162 MILLIGRAM
     Route: 065
     Dates: start: 20210810, end: 20210810
  9. PACLITAXEL. [Suspect]
     Active Substance: PACLITAXEL
     Dosage: 267 MILLIGRAM
     Route: 065
     Dates: start: 20210721, end: 20210721
  10. PROMETHAZINE HYDROCHLORIDE. [Concomitant]
     Active Substance: PROMETHAZINE HYDROCHLORIDE
     Dosage: 25 MILLIGRAM
     Route: 058
     Dates: start: 20210801, end: 20210901
  11. FUROSEMIDE. [Concomitant]
     Active Substance: FUROSEMIDE
     Indication: PRODUCT USED FOR UNKNOWN INDICATION
     Dosage: 20 MILLIGRAM
     Route: 042
     Dates: start: 20210810, end: 20210810
  12. FUROSEMIDE. [Concomitant]
     Active Substance: FUROSEMIDE
     Dosage: 140 MILLIGRAM
     Route: 042
     Dates: start: 20210816, end: 20210823
  13. RECOMBINANT HUMAN ERYTHROPOIETIN INJECTION (CHO CELL) [Concomitant]
     Indication: ADVERSE EVENT
     Dosage: 21000 ? UNITS NOT SPECIFIED, PER DAY
     Route: 042
     Dates: start: 20210812, end: 20210901
  14. POTASSIUM CHLORIDE. [Concomitant]
     Active Substance: POTASSIUM CHLORIDE
     Indication: PRODUCT USED FOR UNKNOWN INDICATION
     Dosage: 10?UNITS NOT SPECIFIED, PER DAY
     Route: 042
     Dates: start: 20210816, end: 20210817
  15. SODIUM CHLORIDE. [Concomitant]
     Active Substance: SODIUM CHLORIDE
     Indication: PRODUCT USED FOR UNKNOWN INDICATION
     Dosage: 20?UNITS NOT SPECIFIED, PER DAY
     Route: 042
     Dates: start: 20210816, end: 20210817
  16. ONDANSETRON HYDROCHLORIDE. [Concomitant]
     Active Substance: ONDANSETRON HYDROCHLORIDE
     Indication: PRODUCT USED FOR UNKNOWN INDICATION
     Dosage: 8 MILLIGRAM
     Route: 042
     Dates: start: 20210810, end: 20210811
  17. CARBOHYDRATE AND ELECTROLYTE [Concomitant]
     Active Substance: CARBOHYDRATES\ELECTROLYTES NOS
     Indication: ADVERSE EVENT
     Dosage: 500?UNITS NOT SPECIFIED, PER DAY
     Route: 042
     Dates: start: 20210810, end: 20210813
  18. CONCENTRATED SODIUM CHLORIDE [Concomitant]
     Active Substance: SODIUM CHLORIDE
     Indication: ADVERSE EVENT
     Dosage: 20?UNITS NOT SPECIFIED, PER DAY
     Route: 042
     Dates: start: 20210810, end: 20210813
  19. CARBOPLATIN. [Suspect]
     Active Substance: CARBOPLATIN
     Dosage: 400 MILLIGRAM
     Route: 065
     Dates: start: 20210722, end: 20210722
  20. PROMETHAZINE HYDROCHLORIDE. [Concomitant]
     Active Substance: PROMETHAZINE HYDROCHLORIDE
     Indication: PRODUCT USED FOR UNKNOWN INDICATION
     Dosage: 25 MILLIGRAM
     Route: 030
     Dates: start: 20210810, end: 20210810

REACTIONS (2)
  - Myelosuppression [Not Recovered/Not Resolved]
  - Atrial fibrillation [Recovered/Resolved]

NARRATIVE: CASE EVENT DATE: 20210813
